FAERS Safety Report 12253651 (Version 2)
Quarter: 2016Q2

REPORT INFORMATION
  Report Type: Spontaneous
  Country: US (occurrence: US)
  Receive Date: 20160411
  Receipt Date: 20160414
  Transmission Date: 20160815
  Serious: Yes (Other)
  Sender: FDA-Public Use
  Company Number: US-TEVA-649823USA

PATIENT
  Age: 54 Year
  Sex: Female

DRUGS (1)
  1. ZECUITY [Suspect]
     Active Substance: SUMATRIPTAN SUCCINATE
     Route: 062
     Dates: start: 201603

REACTIONS (7)
  - Application site exfoliation [Unknown]
  - Device battery issue [Unknown]
  - Device leakage [Unknown]
  - Application site burn [Recovered/Resolved]
  - Sunburn [Recovered/Resolved]
  - Application site irritation [Unknown]
  - Application site vesicles [Unknown]

NARRATIVE: CASE EVENT DATE: 201603
